FAERS Safety Report 7107734-9 (Version None)
Quarter: 2010Q4

REPORT INFORMATION
  Report Type: 
  Country: None (occurrence: None)
  Receive Date: 20101117
  Receipt Date: 20101108
  Transmission Date: 20110411
  Serious: Yes (Hospitalization, Other)
  Sender: FDA-Public Use
  Company Number: US-CELGENEUS-163-21880-10071082

PATIENT
  Sex: Male

DRUGS (9)
  1. REVLIMID [Suspect]
     Indication: MULTIPLE MYELOMA
     Route: 048
     Dates: start: 20080821
  2. BLOOD TRANSFUSION [Concomitant]
     Route: 051
     Dates: start: 20100601, end: 20100601
  3. DEXAMETHASONE [Concomitant]
     Route: 048
     Dates: start: 20070524
  4. AMLODIPINE [Concomitant]
     Route: 048
     Dates: start: 20041130
  5. WARFARIN [Concomitant]
     Indication: ATRIAL FIBRILLATION
     Route: 048
     Dates: start: 20061207
  6. DIGOXIN [Concomitant]
     Indication: ATRIAL FIBRILLATION
     Route: 048
     Dates: start: 20061207
  7. LASIX [Concomitant]
     Route: 048
     Dates: start: 20080505
  8. LEVOTHYROXINE [Concomitant]
     Indication: HYPOTHYROIDISM
     Route: 048
     Dates: start: 20061207
  9. NEURONTIN [Concomitant]
     Route: 048
     Dates: start: 20080821

REACTIONS (6)
  - CHOLECYSTITIS [None]
  - CHOLELITHIASIS [None]
  - FALL [None]
  - FULL BLOOD COUNT DECREASED [None]
  - PANCREATITIS [None]
  - PNEUMONIA [None]
